FAERS Safety Report 13888133 (Version 1)
Quarter: 2017Q3

REPORT INFORMATION
  Report Type: Spontaneous
  Country: MA (occurrence: MA)
  Receive Date: 20170821
  Receipt Date: 20170821
  Transmission Date: 20171127
  Serious: Yes (Other)
  Sender: FDA-Public Use
  Company Number: MA-MYLANLABS-2017M1051390

PATIENT

DRUGS (3)
  1. ASPARAGINASE [Concomitant]
     Active Substance: ASPARAGINASE
     Indication: ANGIOCENTRIC LYMPHOMA
     Dosage: 6000 IU/M2 (DAY2, DAY4, DAY6, DAY8)
     Route: 065
  2. METHOTREXATE. [Suspect]
     Active Substance: METHOTREXATE
     Indication: PRODUCT USED FOR UNKNOWN INDICATION
     Dosage: 3G/M2 (DAY 1)
     Route: 065
  3. DEXAMETHASONE. [Suspect]
     Active Substance: DEXAMETHASONE
     Indication: PRODUCT USED FOR UNKNOWN INDICATION
     Dosage: 40 MG/D (DAY1- DAY4)
     Route: 065

REACTIONS (3)
  - Diabetes mellitus [Unknown]
  - Mucosal toxicity [Unknown]
  - Haematotoxicity [Unknown]
